FAERS Safety Report 18684029 (Version 2)
Quarter: 2021Q1

REPORT INFORMATION
  Report Type: Spontaneous
  Country: US (occurrence: US)
  Receive Date: 20201230
  Receipt Date: 20210105
  Transmission Date: 20210419
  Serious: Yes (Hospitalization, Other)
  Sender: FDA-Public Use
  Company Number: US-BRISTOL-MYERS SQUIBB COMPANY-BMS-2020-112031

PATIENT
  Age: 70 Year
  Sex: Female

DRUGS (2)
  1. TRIAMCINOLONE ACETONIDE. [Suspect]
     Active Substance: TRIAMCINOLONE ACETONIDE
     Indication: PYLORIC STENOSIS
  2. TRIAMCINOLONE ACETONIDE. [Suspect]
     Active Substance: TRIAMCINOLONE ACETONIDE
     Indication: GASTROINTESTINAL STENOSIS
     Dosage: 9 DOSAGE FORM, TOTAL
     Route: 026

REACTIONS (3)
  - Nausea [Unknown]
  - Pyloric abscess [Unknown]
  - Intentional product use issue [Unknown]
